FAERS Safety Report 18173681 (Version 1)
Quarter: 2020Q3

REPORT INFORMATION
  Report Type: Report from Study
  Country: DE (occurrence: DE)
  Receive Date: 20200820
  Receipt Date: 20200820
  Transmission Date: 20201103
  Serious: Yes (Death, Hospitalization)
  Sender: FDA-Public Use
  Company Number: DE-BAXTER-2020BAX016515

PATIENT
  Age: 55 Year
  Sex: Female
  Weight: 81.3 kg

DRUGS (22)
  1. FLUDARABINE [Suspect]
     Active Substance: FLUDARABINE PHOSPHATE
     Indication: PLASMA CELL MYELOMA
     Dosage: LYMPHODEPLETING CHEMOTHERAPY, DOSAGE FORM: INJECTION FOR INFUSION
     Route: 042
     Dates: start: 20181121, end: 20181123
  2. NEUPOGEN [Concomitant]
     Active Substance: FILGRASTIM
     Dosage: DOSE: 30 MIU E
     Route: 065
     Dates: start: 20200402, end: 20200404
  3. DEXAMETHASONE. [Suspect]
     Active Substance: DEXAMETHASONE
     Indication: REFRACTORY CANCER
     Dosage: VDT?PACE CHEMOTHERAPY
     Route: 065
     Dates: start: 20200423, end: 20200426
  4. NEUPOGEN [Concomitant]
     Active Substance: FILGRASTIM
     Dosage: DOSE: 48 MIU E
     Route: 065
     Dates: start: 20200422, end: 20200422
  5. ENDOXAN 1G [Suspect]
     Active Substance: CYCLOPHOSPHAMIDE
     Indication: PLASMA CELL MYELOMA
     Dosage: LYMPHODEPLETING CHEMOTHERAPY, DOSAGE FORM: INJECTION FOR INFUSION
     Route: 042
     Dates: start: 20181121, end: 20181123
  6. ETOPOSIDE. [Suspect]
     Active Substance: ETOPOSIDE
     Indication: REFRACTORY CANCER
     Dosage: VDT?PACE CHEMOTHERAPY
     Route: 065
     Dates: start: 20200423, end: 20200426
  7. COTRIMAZOL [Concomitant]
     Active Substance: SULFAMETHOXAZOLE\TRIMETHOPRIM
     Indication: INFECTION PROPHYLAXIS
     Route: 048
     Dates: start: 20060710, end: 20200424
  8. DOXIL [Suspect]
     Active Substance: DOXORUBICIN HYDROCHLORIDE
     Indication: REFRACTORY CANCER
     Dosage: VDT?PACE CHEMOTHERAPY
     Route: 065
     Dates: start: 20200423, end: 20200426
  9. THALIDOMIDE [Suspect]
     Active Substance: THALIDOMIDE
     Indication: PLASMA CELL MYELOMA RECURRENT
  10. NEUPOGEN [Concomitant]
     Active Substance: FILGRASTIM
     Indication: PRODUCT USED FOR UNKNOWN INDICATION
     Dosage: DOSE: 30 MIU E
     Route: 065
     Dates: start: 20200317, end: 20200319
  11. CISPLATIN. [Suspect]
     Active Substance: CISPLATIN
     Indication: REFRACTORY CANCER
     Dosage: VDT?PACE CHEMOTHERAPY
     Route: 065
     Dates: start: 20200423, end: 20200426
  12. ENDOXAN 1G [Suspect]
     Active Substance: CYCLOPHOSPHAMIDE
     Indication: PLASMA CELL MYELOMA RECURRENT
  13. BORTEZOMIB. [Suspect]
     Active Substance: BORTEZOMIB
     Indication: REFRACTORY CANCER
     Dosage: VDT?PACE CHEMOTHERAPY, DAY 1 AND DAY 4
     Route: 065
     Dates: start: 20200423, end: 20200426
  14. BORTEZOMIB. [Suspect]
     Active Substance: BORTEZOMIB
     Indication: PLASMA CELL MYELOMA RECURRENT
  15. THALIDOMIDE [Suspect]
     Active Substance: THALIDOMIDE
     Indication: REFRACTORY CANCER
     Dosage: VDT?PACE CHEMOTHERAPY
     Route: 048
     Dates: start: 20200423, end: 20200426
  16. CISPLATIN. [Suspect]
     Active Substance: CISPLATIN
     Indication: PLASMA CELL MYELOMA RECURRENT
  17. NEUPOGEN [Concomitant]
     Active Substance: FILGRASTIM
     Dosage: DOSE: 30 MIU E
     Route: 065
     Dates: start: 20200423, end: 20200423
  18. DOXIL [Suspect]
     Active Substance: DOXORUBICIN HYDROCHLORIDE
     Indication: PLASMA CELL MYELOMA RECURRENT
  19. ENDOXAN 1G [Suspect]
     Active Substance: CYCLOPHOSPHAMIDE
     Indication: REFRACTORY CANCER
     Dosage: VDT?PACE CHEMOTHERAPY, DOSAGE FORM: INJECTION FOR INFUSION
     Route: 065
     Dates: start: 20200423, end: 20200426
  20. POTASSIUM CHLORIDE. [Concomitant]
     Active Substance: POTASSIUM CHLORIDE
     Indication: HYPOKALAEMIA
     Route: 065
     Dates: start: 20200427, end: 20200427
  21. DEXAMETHASONE. [Suspect]
     Active Substance: DEXAMETHASONE
     Indication: PLASMA CELL MYELOMA RECURRENT
  22. ETOPOSIDE. [Suspect]
     Active Substance: ETOPOSIDE
     Indication: PLASMA CELL MYELOMA RECURRENT

REACTIONS (2)
  - Pneumonia [Fatal]
  - Septic shock [Fatal]

NARRATIVE: CASE EVENT DATE: 20200427
